FAERS Safety Report 5324833-2 (Version None)
Quarter: 2007Q2

REPORT INFORMATION
  Report Type: 
  Country: None (occurrence: None)
  Receive Date: 20070515
  Receipt Date: 20070504
  Transmission Date: 20071010
  Serious: Yes (Death, Hospitalization, Other)
  Sender: FDA-Public Use
  Company Number: HU-ELI_LILLY_AND_COMPANY-HU200702003666

PATIENT
  Age: 48 Year
  Sex: Female
  Weight: 40 kg

DRUGS (14)
  1. CISPLATIN [Concomitant]
     Indication: LUNG NEOPLASM MALIGNANT
     Dosage: 120 MG, OTHER
     Route: 042
     Dates: start: 20061207
  2. THEOPHYLLINE [Concomitant]
     Dates: start: 20070223
  3. DIONIN [Concomitant]
     Dates: start: 20070224
  4. SOLU-MEDROL [Concomitant]
     Dosage: 40 MG, UNK
     Dates: start: 20070223
  5. GEMZAR [Suspect]
     Indication: LUNG NEOPLASM MALIGNANT
     Dosage: 2000 MG, OTHER
     Route: 042
     Dates: start: 20061207
  6. GLYCERIN [Concomitant]
     Dosage: 1 DL, 2/D
     Dates: start: 20070224
  7. CERUCAL [Concomitant]
     Dosage: 1 D/F, 3/D
     Dates: start: 20070224
  8. FRAXIPARINE [Concomitant]
     Dosage: 0.3 ML, DAILY (1/D)
     Dates: start: 20070224, end: 20070225
  9. FRAXIPARINE [Concomitant]
     Dosage: 0.3 ML, 3/D
     Dates: start: 20070226, end: 20070226
  10. FRAXIPARINE [Concomitant]
     Dosage: 0.3 ML, 2/D
     Dates: start: 20070227
  11. MEDROL [Concomitant]
     Dosage: 16 MG, AS PRESERVER DOSAGE
  12. QUAMATEL [Concomitant]
     Dosage: 40 MG, EACH EVENING
  13. SPIRIVA [Concomitant]
     Dosage: 1 D/F, DAILY (1/D)
     Route: 055
  14. TEGRETOL [Concomitant]
     Dosage: 200 MG, 2/D

REACTIONS (12)
  - ALANINE AMINOTRANSFERASE INCREASED [None]
  - ASPARTATE AMINOTRANSFERASE INCREASED [None]
  - BLOOD ALKALINE PHOSPHATASE [None]
  - BLOOD BILIRUBIN INCREASED [None]
  - BLOOD GLUCOSE INCREASED [None]
  - BRONCHITIS CHRONIC [None]
  - LUNG NEOPLASM MALIGNANT [None]
  - MALIGNANT LYMPHOID NEOPLASM [None]
  - METASTASES TO CENTRAL NERVOUS SYSTEM [None]
  - NEPHROLITHIASIS [None]
  - PLATELET COUNT DECREASED [None]
  - THROMBOPHLEBITIS SUPERFICIAL [None]
